FAERS Safety Report 7320334-0 (Version None)
Quarter: 2011Q1

REPORT INFORMATION
  Report Type: 
  Country: None (occurrence: None)
  Receive Date: 20110228
  Receipt Date: 20110218
  Transmission Date: 20110831
  Serious: Yes (Hospitalization)
  Sender: FDA-Public Use
  Company Number: GB-BAXTER-2011BH004212

PATIENT
  Age: 22 Year
  Sex: Male

DRUGS (2)
  1. FEIBA [Suspect]
     Route: 065
  2. FEIBA [Suspect]
     Indication: FACTOR IX INHIBITION
     Route: 065

REACTIONS (1)
  - ANAPHYLACTIC REACTION [None]
